FAERS Safety Report 5647975-0 (Version None)
Quarter: 2008Q1

REPORT INFORMATION
  Report Type: 
  Country: None (occurrence: None)
  Receive Date: 20080228
  Receipt Date: 20080215
  Transmission Date: 20080703
  Serious: Yes (Hospitalization)
  Sender: FDA-Public Use
  Company Number: 231620J08USA

PATIENT
  Age: 59 Year
  Sex: Female

DRUGS (9)
  1. REBIF [Suspect]
     Indication: MULTIPLE SCLEROSIS
     Dosage: 44 MCG, 3 IN 1 WEEKS, SUBCUTANEOUS
     Route: 058
     Dates: start: 20030602
  2. PRILOSEC [Concomitant]
  3. DILTIAZEM (DILTIAZEM /00489701/) [Concomitant]
  4. ATENOLOL [Concomitant]
  5. PREMARIN [Concomitant]
  6. HYDROCORTISONE HYDROCORTISONE /00028601/) [Concomitant]
  7. NEURONTIN [Concomitant]
  8. CRANBERRY (VACCINIUM MACROCARPON) [Concomitant]
  9. CIPRO (CIPROFLOXACIN /00697201/) [Concomitant]

REACTIONS (6)
  - ABASIA [None]
  - CHOLECYSTITIS INFECTIVE [None]
  - HEART RATE IRREGULAR [None]
  - NAUSEA [None]
  - PAIN [None]
  - PYREXIA [None]
